FAERS Safety Report 10966463 (Version 1)
Quarter: 2015Q1

REPORT INFORMATION
  Report Type: Spontaneous
  Country: BR (occurrence: BR)
  Receive Date: 20150330
  Receipt Date: 20150330
  Transmission Date: 20150721
  Serious: Yes (Hospitalization, Disabling, Other)
  Sender: FDA-Public Use
  Company Number: BR-ELI_LILLY_AND_COMPANY-BR201503006196

PATIENT
  Sex: Male
  Weight: 47 kg

DRUGS (11)
  1. HUMULIN N [Suspect]
     Active Substance: INSULIN HUMAN
     Indication: TYPE 1 DIABETES MELLITUS
     Dosage: 20 IU, EACH MORNING
     Route: 058
     Dates: start: 2004
  2. HUMULIN N [Suspect]
     Active Substance: INSULIN HUMAN
     Dosage: 10 IU, EACH EVENING
     Route: 058
     Dates: start: 2004
  3. HUMALOG [Suspect]
     Active Substance: INSULIN LISPRO
     Dosage: 4 IU, BEFORE DINNER
     Route: 065
     Dates: start: 20150318
  4. HUMALOG [Suspect]
     Active Substance: INSULIN LISPRO
     Indication: BLOOD GLUCOSE INCREASED
     Dosage: 4 IU, BEFORE BREAKFAST
     Route: 065
     Dates: start: 20150318
  5. PROPRANOLOL [Concomitant]
     Active Substance: PROPRANOLOL\PROPRANOLOL HYDROCHLORIDE
     Route: 065
  6. FUROSEMIDE. [Concomitant]
     Active Substance: FUROSEMIDE
     Route: 065
  7. CLONAZEPAM. [Concomitant]
     Active Substance: CLONAZEPAM
     Route: 065
  8. HUMULIN R [Suspect]
     Active Substance: INSULIN HUMAN
     Indication: BLOOD GLUCOSE INCREASED
     Dosage: UNK UNK, PRN
     Route: 058
     Dates: start: 2007, end: 20150317
  9. HUMALOG [Suspect]
     Active Substance: INSULIN LISPRO
     Dosage: 4 IU, BEFORE LUNCH
     Route: 065
     Dates: start: 20150318
  10. SPIRONOLACTONE. [Concomitant]
     Active Substance: SPIRONOLACTONE
     Route: 065
  11. HUMALOG [Suspect]
     Active Substance: INSULIN LISPRO
     Dosage: 4 IU, BEFORE AFTERNOON SNACK
     Route: 065
     Dates: start: 20150318

REACTIONS (12)
  - Abdominal discomfort [Unknown]
  - Hypoglycaemia [Recovered/Resolved]
  - Drug ineffective [Not Recovered/Not Resolved]
  - Haemorrhage [Unknown]
  - Osteomyelitis bacterial [Unknown]
  - Bacterial sepsis [Unknown]
  - Dizziness [Unknown]
  - Folliculitis [Unknown]
  - Platelet count decreased [Unknown]
  - White blood cell count decreased [Not Recovered/Not Resolved]
  - Blood glucose increased [Unknown]
  - Hyperglycaemia [Unknown]
